FAERS Safety Report 20623636 (Version 1)
Quarter: 2022Q1

REPORT INFORMATION
  Report Type: Spontaneous
  Country: IN (occurrence: IN)
  Receive Date: 20220322
  Receipt Date: 20220322
  Transmission Date: 20220423
  Serious: Yes (Hospitalization)
  Sender: FDA-Public Use
  Company Number: IN-AZURITY PHARMACEUTICALS, INC.-IN-2022ARB000794

PATIENT

DRUGS (2)
  1. BACLOFEN [Suspect]
     Active Substance: BACLOFEN
     Indication: Hiccups
     Dosage: 10 MG
  2. BACLOFEN [Suspect]
     Active Substance: BACLOFEN
     Indication: Nausea

REACTIONS (3)
  - Encephalopathy [Recovered/Resolved]
  - Neurotoxicity [Unknown]
  - Wrong dose [None]
